FAERS Safety Report 16405711 (Version 2)
Quarter: 2019Q4

REPORT INFORMATION
  Report Type: Report from Study
  Country: US (occurrence: US)
  Receive Date: 20190607
  Receipt Date: 20191004
  Transmission Date: 20200122
  Serious: Yes (Death)
  Sender: FDA-Public Use
  Company Number: US-BAUSCH-BL-2019-016529

PATIENT
  Sex: Female
  Weight: 54.48 kg

DRUGS (1)
  1. XIFAXAN [Suspect]
     Active Substance: RIFAXIMIN
     Indication: NONALCOHOLIC FATTY LIVER DISEASE
     Dosage: REPORTER THOUGHT TWO TIMES A DAY
     Route: 048

REACTIONS (2)
  - Cardiac disorder [Fatal]
  - Nonalcoholic fatty liver disease [Fatal]
